FAERS Safety Report 21874640 (Version 3)
Quarter: 2023Q2

REPORT INFORMATION
  Report Type: Spontaneous
  Country: BR (occurrence: None)
  Receive Date: 20230117
  Receipt Date: 20230419
  Transmission Date: 20230722
  Serious: Yes (Death, Hospitalization)
  Sender: FDA-Public Use
  Company Number: 2022A408419

PATIENT
  Age: 58 Year
  Sex: Male

DRUGS (2)
  1. ESOMEPRAZOLE [Suspect]
     Active Substance: ESOMEPRAZOLE
     Indication: Gastritis
     Dosage: A TABLET PER DAY FASTING
     Route: 048
     Dates: start: 20221121, end: 20221212
  2. VALSARTAN [Concomitant]
     Active Substance: VALSARTAN

REACTIONS (8)
  - Cerebrovascular accident [Fatal]
  - Cardiac failure congestive [Not Recovered/Not Resolved]
  - Miller Fisher syndrome [Not Recovered/Not Resolved]
  - Tendonitis [Not Recovered/Not Resolved]
  - Blood potassium decreased [Unknown]
  - Hallucination [Not Recovered/Not Resolved]
  - Syncope [Recovered/Resolved]
  - Confusional state [Not Recovered/Not Resolved]

NARRATIVE: CASE EVENT DATE: 20221208
